FAERS Safety Report 21334042 (Version 1)
Quarter: 2022Q3

REPORT INFORMATION
  Report Type: Spontaneous
  Country: US (occurrence: US)
  Receive Date: 20220914
  Receipt Date: 20220914
  Transmission Date: 20221027
  Serious: No
  Sender: FDA-Public Use
  Company Number: US-LANNETT COMPANY, INC.-US-2021LAN000342

PATIENT
  Sex: Male

DRUGS (1)
  1. LACTULOSE [Suspect]
     Active Substance: LACTULOSE
     Indication: Hepatic encephalopathy
     Dosage: 20 MG, UNK
     Route: 048
     Dates: start: 202107

REACTIONS (4)
  - Gastrointestinal sounds abnormal [Unknown]
  - Abdominal discomfort [Unknown]
  - Impaired quality of life [Unknown]
  - Flatulence [Unknown]

NARRATIVE: CASE EVENT DATE: 20210701
